FAERS Safety Report 7481680-3 (Version None)
Quarter: 2011Q2

REPORT INFORMATION
  Report Type: 
  Country: None (occurrence: None)
  Receive Date: 20110516
  Receipt Date: 20110512
  Transmission Date: 20111010
  Serious: Yes (Other)
  Sender: FDA-Public Use
  Company Number: GB-ROCHE-776760

PATIENT
  Age: 50 Year
  Sex: Female
  Weight: 36 kg

DRUGS (1)
  1. ACTEMRA [Suspect]
     Indication: RHEUMATOID ARTHRITIS
     Route: 042
     Dates: start: 20101001, end: 20101122

REACTIONS (1)
  - DOUBLE STRANDED DNA ANTIBODY POSITIVE [None]
